FAERS Safety Report 22330991 (Version 1)
Quarter: 2023Q2

REPORT INFORMATION
  Report Type: Spontaneous
  Country: US (occurrence: None)
  Receive Date: 20230515
  Receipt Date: 20230515
  Transmission Date: 20230722
  Serious: No
  Sender: FDA-Public Use
  Company Number: None

PATIENT
  Age: 44 Year
  Sex: Male
  Weight: 67.5 kg

DRUGS (1)
  1. FINASTERIDE [Suspect]
     Active Substance: FINASTERIDE
     Indication: Alopecia
     Dosage: FREQUENCY : AT BEDTIME;?
     Route: 048

REACTIONS (7)
  - Loss of libido [None]
  - Erectile dysfunction [None]
  - Cognitive disorder [None]
  - Brain fog [None]
  - Negative thoughts [None]
  - Vision blurred [None]
  - Depression [None]

NARRATIVE: CASE EVENT DATE: 20230301
